FAERS Safety Report 23157930 (Version 1)
Quarter: 2023Q4

REPORT INFORMATION
  Report Type: Spontaneous
  Country: TR (occurrence: TR)
  Receive Date: 20231108
  Receipt Date: 20231108
  Transmission Date: 20240109
  Serious: Yes (Other)
  Sender: FDA-Public Use
  Company Number: TR-EPICPHARMA-TR-2023EPCLIT01657

PATIENT
  Age: 76 Year
  Sex: Male

DRUGS (1)
  1. BUPROPION HYDROCHLORIDE [Suspect]
     Active Substance: BUPROPION HYDROCHLORIDE
     Indication: Major depression
     Route: 065

REACTIONS (2)
  - Ischaemic stroke [Unknown]
  - Myocardial infarction [Unknown]
